FAERS Safety Report 13185781 (Version 4)
Quarter: 2018Q3

REPORT INFORMATION
  Report Type: Spontaneous
  Country: US (occurrence: US)
  Receive Date: 20170203
  Receipt Date: 20180703
  Transmission Date: 20181010
  Serious: Yes (Hospitalization)
  Sender: FDA-Public Use
  Company Number: US-ACTELION-A-NJ2017-149417

PATIENT
  Age: 52 Year
  Sex: Female

DRUGS (21)
  1. FORMOTEROL FUMARATE W/MOMETASONE FUROATE [Concomitant]
     Dosage: 200?5MCG/ACTUA 2 PUFFS
  2. EPOETIN [Concomitant]
     Active Substance: ERYTHROPOIETIN
  3. FLUCONAZOLE. [Concomitant]
     Active Substance: FLUCONAZOLE
  4. OPSUMIT [Suspect]
     Active Substance: MACITENTAN
     Indication: PULMONARY ARTERIAL HYPERTENSION
     Dosage: 10 MG, QD
     Route: 048
     Dates: start: 20160730, end: 20180525
  5. VENTOLIN HFA [Concomitant]
     Active Substance: ALBUTEROL SULFATE
  6. ADVAIR HFA [Concomitant]
     Active Substance: FLUTICASONE PROPIONATE\SALMETEROL XINAFOATE
  7. SUCROSE [Concomitant]
     Active Substance: SUCROSE
  8. TREPROSTINIL [Concomitant]
     Active Substance: TREPROSTINIL
     Dosage: 1.74MG/2.9 ML INHAK 9 PUFFS 4X/D
  9. VITAMIN D3 [Concomitant]
     Active Substance: CHOLECALCIFEROL
  10. URSODIOL. [Concomitant]
     Active Substance: URSODIOL
     Dosage: 250 MG, BID
  11. LACTULOSE. [Concomitant]
     Active Substance: LACTULOSE
  12. HYDROCHLOROTHIAZIDE. [Concomitant]
     Active Substance: HYDROCHLOROTHIAZIDE
  13. SILDENAFIL. [Concomitant]
     Active Substance: SILDENAFIL
     Dosage: 20 MG, TID
  14. RIFAXIMIN. [Concomitant]
     Active Substance: RIFAXIMIN
  15. TORSEMIDE. [Concomitant]
     Active Substance: TORSEMIDE
     Dosage: 100 MG, QD
  16. VITAMIN A [Concomitant]
     Active Substance: VITAMIN A
     Dosage: UNK
  17. TORSEMIDE. [Concomitant]
     Active Substance: TORSEMIDE
     Dosage: 20 MG, BID
  18. POTASSIUM CHLORIDE. [Concomitant]
     Active Substance: POTASSIUM CHLORIDE
     Dosage: 20 MEQ, QD
  19. TYVASO [Concomitant]
     Active Substance: TREPROSTINIL
  20. SPIRONOLACTONE. [Concomitant]
     Active Substance: SPIRONOLACTONE
  21. IRON [Concomitant]
     Active Substance: IRON

REACTIONS (21)
  - Ammonia increased [Unknown]
  - Pneumonia [Not Recovered/Not Resolved]
  - Blood bilirubin increased [Unknown]
  - Somnolence [Unknown]
  - Acute kidney injury [Not Recovered/Not Resolved]
  - Dyspnoea [Not Recovered/Not Resolved]
  - Left ventricular end-diastolic pressure increased [Unknown]
  - Pain in extremity [Unknown]
  - Diastolic dysfunction [Unknown]
  - Confusional state [Recovering/Resolving]
  - Blood alkaline phosphatase increased [Unknown]
  - Renal impairment [Unknown]
  - Sciatica [Unknown]
  - Pyrexia [Not Recovered/Not Resolved]
  - Fluid overload [Unknown]
  - Asthenia [Recovering/Resolving]
  - Bone pain [Not Recovered/Not Resolved]
  - Myalgia [Not Recovered/Not Resolved]
  - Abdominal pain [Unknown]
  - Condition aggravated [Unknown]
  - Cardiac failure congestive [Unknown]

NARRATIVE: CASE EVENT DATE: 20170118
